FAERS Safety Report 6599151-5 (Version None)
Quarter: 2010Q1

REPORT INFORMATION
  Report Type: 
  Country: None (occurrence: None)
  Receive Date: 20100224
  Receipt Date: 20100216
  Transmission Date: 20100710
  Serious: Yes (Hospitalization, Other)
  Sender: FDA-Public Use
  Company Number: US-BRISTOL-MYERS SQUIBB COMPANY-14979777

PATIENT
  Sex: Female

DRUGS (3)
  1. SINEMET [Suspect]
     Indication: PARKINSON'S DISEASE
     Dosage: 25/100. 1 DF= 21/2 PILLS DAILY REDUCED TO 11/2
     Route: 048
  2. AZILECT [Interacting]
     Indication: PARKINSON'S DISEASE
     Route: 048
     Dates: start: 20091001
  3. NON-MEDICINAL PRODUCT [Interacting]

REACTIONS (4)
  - BLOOD PRESSURE DECREASED [None]
  - DIZZINESS [None]
  - FOOD INTERACTION [None]
  - TYRAMINE REACTION [None]
